FAERS Safety Report 10104449 (Version 2)
Quarter: 2014Q2

REPORT INFORMATION
  Report Type: Other
  Country: US (occurrence: US)
  Receive Date: 20140424
  Receipt Date: 20140610
  Transmission Date: 20141212
  Serious: Yes (Hospitalization, Other)
  Sender: FDA-Public Use
  Company Number: US-GSKPPD-2014GSK001350

PATIENT
  Age: 77 Year
  Sex: Male

DRUGS (6)
  1. AVANDIA [Suspect]
     Indication: DIABETES MELLITUS
     Route: 048
     Dates: start: 20070115
  2. ASPIRIN [Concomitant]
     Route: 048
  3. TOPROL XL [Concomitant]
     Route: 048
  4. PLAVIX [Concomitant]
     Route: 048
  5. COZAAR [Concomitant]
     Route: 048
  6. NITROGLYCERIN [Concomitant]

REACTIONS (1)
  - Myocardial infarction [Recovered/Resolved]
